APPROVED DRUG PRODUCT: THIOGUANINE
Active Ingredient: THIOGUANINE
Strength: 40MG
Dosage Form/Route: TABLET;ORAL
Application: N012429 | Product #001
Applicant: WAYLIS THERAPEUTICS LLC
Approved: Approved Prior to Jan 1, 1982 | RLD: Yes | RS: Yes | Type: RX